FAERS Safety Report 5131442-7 (Version None)
Quarter: 2006Q4

REPORT INFORMATION
  Report Type: 
  Country: None (occurrence: None)
  Receive Date: 20061020
  Receipt Date: 20061011
  Transmission Date: 20070319
  Serious: Yes (Disabling, Congenital Anomaly, Other)
  Sender: FDA-Public Use
  Company Number: FR-BRISTOL-MYERS SQUIBB COMPANY-13542238

PATIENT
  Age: 1 Day
  Sex: Male
  Weight: 2 kg

DRUGS (3)
  1. SUSTIVA [Suspect]
     Indication: HIV INFECTION
     Dosage: STARTED PRIOR TO CONCEPTION, DISCONTINEUD WEEK 21 OF GESTATION
     Route: 064
  2. COMBIVIR [Suspect]
     Indication: HIV INFECTION
     Route: 064
     Dates: end: 20060425
  3. KALETRA [Suspect]
     Indication: HIV INFECTION
     Dosage: STARTED GESTATIONAL WEEK 21 CONTINUED TO DELIVERY
     Route: 064
     Dates: end: 20060425

REACTIONS (3)
  - ATRIAL SEPTAL DEFECT [None]
  - PREGNANCY [None]
  - PREMATURE LABOUR [None]
